FAERS Safety Report 15027109 (Version 8)
Quarter: 2021Q2

REPORT INFORMATION
  Report Type: Other
  Country: US (occurrence: US)
  Receive Date: 20180619
  Receipt Date: 20210427
  Transmission Date: 20210716
  Serious: Yes (Hospitalization, Other)
  Sender: FDA-Public Use
  Company Number: US-ROCHE-2140859

PATIENT
  Age: 55 Year
  Sex: Female
  Weight: 45.4 kg

DRUGS (2)
  1. OCREVUS [Suspect]
     Active Substance: OCRELIZUMAB
     Indication: SECONDARY PROGRESSIVE MULTIPLE SCLEROSIS
     Dosage: DATE OF TREATMENT: 27/DEC/2017, 23/JUL/2018, 30/APR/2019, 17/SEP/2019, 29/OCT/2020, 02/MAR/2020,
     Route: 042
     Dates: start: 20170620
  2. OCREVUS [Suspect]
     Active Substance: OCRELIZUMAB
     Indication: RELAPSING MULTIPLE SCLEROSIS

REACTIONS (12)
  - Influenza like illness [Recovered/Resolved]
  - White blood cell count decreased [Not Recovered/Not Resolved]
  - Amnesia [Unknown]
  - Skin laceration [Recovering/Resolving]
  - Erythema [Recovering/Resolving]
  - Multiple sclerosis relapse [Recovered/Resolved]
  - Off label use [Unknown]
  - Dermatitis [Recovering/Resolving]
  - Cellulitis [Recovering/Resolving]
  - Nausea [Recovered/Resolved]
  - Peripheral swelling [Recovering/Resolving]
  - Limb injury [Recovering/Resolving]

NARRATIVE: CASE EVENT DATE: 201812
